FAERS Safety Report 4614045-X (Version None)
Quarter: 2005Q1

REPORT INFORMATION
  Report Type: 
  Country: None (occurrence: None)
  Receive Date: 20050316
  Receipt Date: 20050224
  Transmission Date: 20050727
  Serious: Yes (Other)
  Sender: FDA-Public Use
  Company Number: FR_050205899

PATIENT
  Sex: Male

DRUGS (1)
  1. CELANCE (PERGOLIDE MESYLATE) [Suspect]
     Dosage: 3 MG DAY
     Dates: start: 20010101, end: 20050201

REACTIONS (1)
  - AORTIC VALVE STENOSIS [None]
